FAERS Safety Report 9292888 (Version 1)
Quarter: 2013Q2

REPORT INFORMATION
  Report Type: Spontaneous
  Country: US (occurrence: None)
  Receive Date: 20130515
  Receipt Date: 20130515
  Transmission Date: 20140414
  Serious: Yes (Other)
  Sender: FDA-Public Use
  Company Number: None

PATIENT
  Age: 75 Year
  Sex: Female
  Weight: 65.32 kg

DRUGS (1)
  1. ZETIA 10 MG TAB MERCK/SCHE [Suspect]
     Indication: BLOOD CHOLESTEROL INCREASED
     Route: 048
     Dates: start: 20120808

REACTIONS (5)
  - Muscular weakness [None]
  - Rhabdomyolysis [None]
  - Arthralgia [None]
  - Hypoaesthesia [None]
  - Tongue ulceration [None]
